FAERS Safety Report 5509614-9 (Version None)
Quarter: 2007Q4

REPORT INFORMATION
  Report Type: 
  Country: None (occurrence: None)
  Receive Date: 20071107
  Receipt Date: 20071107
  Transmission Date: 20080405
  Serious: No
  Sender: FDA-Public Use
  Company Number: None

PATIENT
  Age: 27 Year
  Sex: Female
  Weight: 55.3388 kg

DRUGS (1)
  1. PAMELOR [Suspect]
     Indication: HEADACHE
     Dosage: 10 MG QHS PO
     Route: 048
     Dates: start: 20070919, end: 20070926

REACTIONS (4)
  - BLOOD PRESSURE INCREASED [None]
  - DYSPNOEA [None]
  - LEFT VENTRICULAR DYSFUNCTION [None]
  - PALPITATIONS [None]
